FAERS Safety Report 8169746-6 (Version None)
Quarter: 2012Q1

REPORT INFORMATION
  Report Type: 
  Country: None (occurrence: None)
  Receive Date: 20120228
  Receipt Date: 20120224
  Transmission Date: 20120608
  Serious: Yes (Death, Hospitalization)
  Sender: FDA-Public Use
  Company Number: US-SHIRE-ALL1-2012-01106

PATIENT
  Sex: Female

DRUGS (1)
  1. FOSRENOL [Suspect]
     Indication: HYPERPHOSPHATAEMIA
     Dosage: 2000 MG(TWO 1000 MG TABLETS THREE TIMES A DAY), 3X/DAY:TID
     Route: 048

REACTIONS (2)
  - CARDIAC ARREST [None]
  - BACTERIAL INFECTION [None]
